FAERS Safety Report 5158736-3 (Version None)
Quarter: 2006Q4

REPORT INFORMATION
  Report Type: 
  Country: None (occurrence: None)
  Receive Date: 20061128
  Receipt Date: 20061124
  Transmission Date: 20070319
  Serious: Yes (Other)
  Sender: FDA-Public Use
  Company Number: 06097

PATIENT
  Age: 37 Year
  Sex: Male
  Weight: 80 kg

DRUGS (2)
  1. LAMOTRIGINE [Suspect]
     Dosage: 175MG PER DAY
     Route: 048
     Dates: start: 20060920
  2. PLENUR [Concomitant]
     Dosage: 1G PER DAY
     Route: 048
     Dates: start: 20060624

REACTIONS (8)
  - ANOREXIA [None]
  - DIARRHOEA [None]
  - HEPATIC ENZYME INCREASED [None]
  - LYMPHADENOPATHY [None]
  - MALAISE [None]
  - NAUSEA [None]
  - PYREXIA [None]
  - RASH ERYTHEMATOUS [None]
